FAERS Safety Report 7230347-5 (Version None)
Quarter: 2011Q1

REPORT INFORMATION
  Report Type: 
  Country: None (occurrence: None)
  Receive Date: 20110118
  Receipt Date: 20110111
  Transmission Date: 20110831
  Serious: Yes (Hospitalization, Other)
  Sender: FDA-Public Use
  Company Number: DE-JNJFOC-20101205856

PATIENT
  Sex: Male
  Weight: 15 kg

DRUGS (3)
  1. HALDOL [Suspect]
     Indication: AGITATION POSTOPERATIVE
     Route: 042
  2. MIDAZOLAM [Concomitant]
     Indication: PREMEDICATION
     Route: 048
  3. CLONIDINE [Concomitant]
     Route: 042

REACTIONS (5)
  - OVERDOSE [None]
  - INCORRECT ROUTE OF DRUG ADMINISTRATION [None]
  - STUPOR [None]
  - SOMNOLENCE [None]
  - DYSTONIA [None]
